FAERS Safety Report 9591405 (Version 1)
Quarter: 2013Q4

REPORT INFORMATION
  Report Type: Spontaneous
  Country: US (occurrence: US)
  Receive Date: 20131003
  Receipt Date: 20131003
  Transmission Date: 20140711
  Serious: No
  Sender: FDA-Public Use
  Company Number: US-AMGEN-USASP2012080364

PATIENT
  Age: 61 Year
  Sex: Female
  Weight: 64.4 kg

DRUGS (18)
  1. ENBREL [Suspect]
     Indication: RHEUMATOID ARTHRITIS
     Dosage: 50 MG, QWK
     Route: 058
  2. METHOTREXATE [Concomitant]
     Dosage: 2.5 MG, UNK
  3. VITAMIN D                          /00107901/ [Concomitant]
     Dosage: 2000 UNIT, UNK
  4. OMEGA 3                            /01334101/ [Concomitant]
     Dosage: 1000 MG, UNK
  5. FLUOXETINE [Concomitant]
     Dosage: 40 MG, UNK
  6. TRAZODONE [Concomitant]
     Dosage: 100 MG, UNK
  7. MELOXICAM [Concomitant]
     Dosage: 15 MG, UNK
  8. NEXIUM                             /01479302/ [Concomitant]
     Dosage: 40 MG, UNK
  9. MAGNESIUM OXIDE [Concomitant]
     Dosage: 400 MG, UNK
  10. POTASSIUM GLUCONATE [Concomitant]
     Dosage: 2.5 MEQ, UNK
  11. LEUCOVORIN                         /00566701/ [Concomitant]
     Dosage: UNK
  12. CALCIUM [Concomitant]
     Dosage: UNK
  13. FOLIC ACID [Concomitant]
     Dosage: UNK
  14. LEVOTHYROXINE [Concomitant]
     Dosage: 100 MUG, UNK
  15. ALLEGRA [Concomitant]
     Dosage: 30 MG, UNK
  16. STRESS FORMULA                     /02361601/ [Concomitant]
     Dosage: UNK
  17. LORAZEPAM [Concomitant]
     Dosage: 1 MG, UNK
  18. PROVENTIL                          /00139501/ [Concomitant]
     Dosage: 90 MUG, UNK

REACTIONS (1)
  - Rheumatoid arthritis [Recovered/Resolved]
